FAERS Safety Report 5317520-8 (Version None)
Quarter: 2007Q2

REPORT INFORMATION
  Report Type: 
  Country: None (occurrence: None)
  Receive Date: 20070507
  Receipt Date: 20070503
  Transmission Date: 20071010
  Serious: Yes (Hospitalization)
  Sender: FDA-Public Use
  Company Number: HQWYE084210APR07

PATIENT
  Age: 30 Year
  Sex: Female

DRUGS (3)
  1. VENLAFAXIINE HCL [Suspect]
     Dosage: OVERDOSE AMOUNT WAS 5.5 G
     Route: 048
  2. ALPRAZOLAM [Suspect]
     Dosage: OVERDOSE AMOUNT WAS 500 MG
     Route: 048
  3. HYDROXYZINE [Suspect]
     Dosage: OVERDOSE AMOUNT WAS 250 MG
     Route: 048

REACTIONS (9)
  - ACUTE LEFT VENTRICULAR FAILURE [None]
  - CONVULSION [None]
  - DRUG TOXICITY [None]
  - INTENTIONAL OVERDOSE [None]
  - PULMONARY OEDEMA [None]
  - RESPIRATORY FAILURE [None]
  - RHABDOMYOLYSIS [None]
  - SEROTONIN SYNDROME [None]
  - SUICIDE ATTEMPT [None]
